FAERS Safety Report 24427376 (Version 1)
Quarter: 2024Q4

REPORT INFORMATION
  Report Type: Spontaneous
  Country: US (occurrence: US)
  Receive Date: 20241011
  Receipt Date: 20241011
  Transmission Date: 20250115
  Serious: No
  Sender: SANOFI AVENTIS
  Company Number: US-SA-2024SA292468

PATIENT
  Sex: Male
  Weight: 29.05 kg

DRUGS (1)
  1. DUPIXENT [Suspect]
     Active Substance: DUPILUMAB
     Indication: Eosinophilic oesophagitis
     Dosage: 200.000MG QOW
     Route: 058

REACTIONS (4)
  - Drug hypersensitivity [Unknown]
  - Erythema [Unknown]
  - Urticaria [Unknown]
  - Swelling [Unknown]
